FAERS Safety Report 6442936-6 (Version None)
Quarter: 2009Q4

REPORT INFORMATION
  Report Type: 
  Country: None (occurrence: None)
  Receive Date: 20091117
  Receipt Date: 20090507
  Transmission Date: 20100525
  Serious: Yes (Disabling, Other)
  Sender: FDA-Public Use
  Company Number: US-BAYER-200914289NA

PATIENT
  Age: 53 Year
  Sex: Female
  Weight: 62 kg

DRUGS (17)
  1. MAGNEVIST [Suspect]
     Indication: NUCLEAR MAGNETIC RESONANCE IMAGING ABDOMINAL
     Dosage: TOTAL DAILY DOSE: 30 ML
     Route: 042
     Dates: start: 20060803, end: 20060803
  2. OMNISCAN [Suspect]
     Indication: DRUG USE FOR UNKNOWN INDICATION
  3. OPTIMARK [Suspect]
     Indication: DRUG USE FOR UNKNOWN INDICATION
  4. MULTIHANCE [Suspect]
     Indication: DRUG USE FOR UNKNOWN INDICATION
  5. PROHANCE [Suspect]
     Indication: DRUG USE FOR UNKNOWN INDICATION
  6. RENAGEL [Concomitant]
  7. NEPHROVITE [Concomitant]
  8. LABETALOL [Concomitant]
  9. COZAAR [Concomitant]
  10. CINACALCET [Concomitant]
  11. PREVACID [Concomitant]
  12. ARANESP [Concomitant]
     Dosage: QWK
  13. HEPARIN [Concomitant]
  14. ASPIRIN [Concomitant]
  15. OXYCODONE HCL [Concomitant]
  16. SENSIPAR [Concomitant]
  17. ISOVUE-370 [Concomitant]
     Indication: ANGIOGRAM
     Dosage: TOTAL DAILY DOSE: 100 ML
     Dates: start: 20060804, end: 20060804

REACTIONS (21)
  - ANHEDONIA [None]
  - ANXIETY [None]
  - DEFORMITY [None]
  - DEPRESSION [None]
  - EMOTIONAL DISTRESS [None]
  - FIBROSIS [None]
  - GENERAL PHYSICAL HEALTH DETERIORATION [None]
  - MENTAL DISORDER [None]
  - MOBILITY DECREASED [None]
  - MUSCLE FATIGUE [None]
  - MUSCULAR WEAKNESS [None]
  - NEPHROGENIC SYSTEMIC FIBROSIS [None]
  - PAIN IN EXTREMITY [None]
  - SKIN FIBROSIS [None]
  - SKIN HYPERPIGMENTATION [None]
  - SKIN HYPERTROPHY [None]
  - SKIN INDURATION [None]
  - SKIN LESION [None]
  - SKIN PLAQUE [None]
  - STRESS [None]
  - SUBCUTANEOUS NODULE [None]
